FAERS Safety Report 7374778-1 (Version None)
Quarter: 2011Q1

REPORT INFORMATION
  Report Type: 
  Country: None (occurrence: None)
  Receive Date: 20110325
  Receipt Date: 20101102
  Transmission Date: 20110831
  Serious: No
  Sender: FDA-Public Use
  Company Number: US-MYLANLABS-2010S1020308

PATIENT
  Sex: Female
  Weight: 52.16 kg

DRUGS (3)
  1. MILK OF MAGNESIA TAB [Concomitant]
     Indication: CONSTIPATION
  2. FENTANYL-100 [Suspect]
     Indication: TRIGEMINAL NEURALGIA
     Dosage: CHANGED Q72H
     Route: 062
     Dates: start: 20080101
  3. VICODIN [Concomitant]
     Indication: PAIN
     Route: 048

REACTIONS (5)
  - WEIGHT DECREASED [None]
  - APPLICATION SITE ERYTHEMA [None]
  - SKIN ATROPHY [None]
  - PRURITUS [None]
  - CONSTIPATION [None]
